FAERS Safety Report 25725025 (Version 1)
Quarter: 2025Q3

REPORT INFORMATION
  Report Type: Spontaneous
  Country: JO (occurrence: JO)
  Receive Date: 20250826
  Receipt Date: 20250826
  Transmission Date: 20251021
  Serious: Yes (Other)
  Sender: ALKEM
  Company Number: JO-ALKEM LABORATORIES LIMITED-JO-ALKEM-2024-18648

PATIENT
  Age: 35 Year
  Sex: Male

DRUGS (4)
  1. PREGABALIN [Suspect]
     Active Substance: PREGABALIN
     Indication: Product used for unknown indication
     Route: 065
  2. KEMADRIN [Suspect]
     Active Substance: PROCYCLIDINE HYDROCHLORIDE
     Indication: Product used for unknown indication
     Route: 065
  3. ALPRAZOLAM [Suspect]
     Active Substance: ALPRAZOLAM
     Indication: Product used for unknown indication
     Route: 065
  4. CLONAZEPAM [Suspect]
     Active Substance: CLONAZEPAM
     Indication: Product used for unknown indication
     Route: 065

REACTIONS (9)
  - Drug abuse [Unknown]
  - Cognitive disorder [Unknown]
  - Withdrawal syndrome [Unknown]
  - Confusional state [Unknown]
  - Pain [Unknown]
  - Arthralgia [Unknown]
  - Prescription drug used without a prescription [Unknown]
  - Headache [Unknown]
  - Chills [Unknown]
